FAERS Safety Report 4320073-4 (Version None)
Quarter: 2004Q1

REPORT INFORMATION
  Report Type: 
  Country: None (occurrence: None)
  Receive Date: 20040315
  Receipt Date: 20040203
  Transmission Date: 20041129
  Serious: No
  Sender: FDA-Public Use
  Company Number: 2004197573US

PATIENT

DRUGS (2)
  1. BEXTRA [Suspect]
  2. TYLENOL (CAPLET) [Concomitant]

REACTIONS (1)
  - ADVERSE DRUG REACTION [None]
